FAERS Safety Report 10255551 (Version 2)
Quarter: 2014Q2

REPORT INFORMATION
  Report Type: Other
  Country: US (occurrence: US)
  Receive Date: 20140624
  Receipt Date: 20140624
  Transmission Date: 20141212
  Serious: Yes (Hospitalization, Other)
  Sender: FDA-Public Use
  Company Number: US-GSKPPD-2014GSK000294

PATIENT
  Age: 68 Year
  Sex: Female
  Weight: 97.61 kg

DRUGS (7)
  1. AVANDIA [Suspect]
     Indication: DIABETES MELLITUS
     Dosage: DATES OF AVANDIA USE COULD NOT BE CONFIRMED IN RECORDS REVIEWED.
     Route: 048
  2. AVANDAMET [Suspect]
     Indication: DIABETES MELLITUS
     Dosage: 4/500 MG?DATES OF AVANDAMET USE COULD NOT BE CONFIRMED IN RECORDS REVIEWED
  3. DIOVAN / HYDROCHLOROTHIAZIDE [Concomitant]
     Dosage: 160/12.5 MG
  4. ENALAPRIL / HYDROCHLOROTHIAZIDE [Concomitant]
     Dosage: 10/25 MG
     Dates: start: 20020309
  5. PLAVIX [Concomitant]
     Dates: start: 20061010
  6. TOPROL XL [Concomitant]
     Dates: start: 20060227
  7. ASPIRIN [Concomitant]

REACTIONS (1)
  - Coronary artery disease [None]
